FAERS Safety Report 12133660 (Version 1)
Quarter: 2016Q1

REPORT INFORMATION
  Report Type: Other
  Country: GB (occurrence: GB)
  Receive Date: 20160301
  Receipt Date: 20160301
  Transmission Date: 20160526
  Serious: Yes (Hospitalization)
  Sender: FDA-Public Use
  Company Number: GB-SHIRE-GB201602139

PATIENT
  Sex: Male

DRUGS (1)
  1. VPRIV [Suspect]
     Active Substance: VELAGLUCERASE ALFA
     Indication: GAUCHER^S DISEASE
     Dosage: 2800 IU (7 VIALS), 1X/2WKS
     Route: 041
     Dates: start: 20131115

REACTIONS (4)
  - Abdominal pain upper [Unknown]
  - International normalised ratio abnormal [Unknown]
  - Diarrhoea [Unknown]
  - Hypotension [Unknown]
